FAERS Safety Report 24338227 (Version 2)
Quarter: 2024Q4

REPORT INFORMATION
  Report Type: Spontaneous
  Country: ES (occurrence: ES)
  Receive Date: 20240919
  Receipt Date: 20241004
  Transmission Date: 20250115
  Serious: Yes (Hospitalization, Other)
  Sender: JOHNSON AND JOHNSON
  Company Number: ES-JNJFOC-20240938291

PATIENT
  Age: 74 Year
  Sex: Male
  Weight: 120 kg

DRUGS (17)
  1. TREMFYA [Suspect]
     Active Substance: GUSELKUMAB
     Indication: Product used for unknown indication
     Dosage: LAST ADMINISTRATION DATE 13-SEP-2024
     Route: 058
  2. TREMFYA [Suspect]
     Active Substance: GUSELKUMAB
  3. TREMFYA [Suspect]
     Active Substance: GUSELKUMAB
  4. ALLOPURINOL [Concomitant]
     Active Substance: ALLOPURINOL
     Indication: Nephropathy
     Route: 048
  5. OMEPRAZOLE [Concomitant]
     Active Substance: OMEPRAZOLE
     Indication: Gastrointestinal disorder therapy
     Route: 048
  6. RYBELSUS [Concomitant]
     Active Substance: SEMAGLUTIDE
     Indication: Diabetes mellitus management
     Route: 048
  7. CYANOCOBALAMIN [Concomitant]
     Active Substance: CYANOCOBALAMIN
     Indication: Anaemia
     Route: 048
  8. SPIRIVA RESPIMAT [Concomitant]
     Active Substance: TIOTROPIUM BROMIDE
     Indication: Lung disorder
     Dosage: 2.5 MICROG. 2 INHALATIONS / DAY
     Route: 045
  9. FERBISOL [Concomitant]
     Indication: Anaemia
     Route: 048
  10. FUROSEMIDE [Concomitant]
     Active Substance: FUROSEMIDE
     Indication: Diuretic therapy
     Route: 048
  11. FERROUS GLYCINE SULFATE [Concomitant]
     Active Substance: FERROUS GLYCINE SULFATE
     Indication: Anaemia
     Route: 048
  12. CALCIFEDIOL [Concomitant]
     Active Substance: CALCIFEDIOL
     Indication: Vitamin D
     Route: 048
  13. FOLIC ACID [Concomitant]
     Active Substance: FOLIC ACID
     Indication: Anaemia
     Route: 048
  14. INREQ [Concomitant]
     Indication: Benign prostatic hyperplasia
     Route: 048
  15. ARANESP [Concomitant]
     Active Substance: DARBEPOETIN ALFA
     Indication: Anaemia
  16. SANDOSTATIN [Concomitant]
     Active Substance: OCTREOTIDE ACETATE
  17. CLOBETASOL PROPIONATE [Concomitant]
     Active Substance: CLOBETASOL PROPIONATE
     Indication: Steroid therapy
     Route: 061

REACTIONS (5)
  - Hepatic cirrhosis [Recovering/Resolving]
  - Renal disorder [Recovering/Resolving]
  - Anaemia [Recovering/Resolving]
  - Bone density decreased [Unknown]
  - Adverse event [Unknown]
